FAERS Safety Report 14964618 (Version 1)
Quarter: 2018Q2

REPORT INFORMATION
  Report Type: Spontaneous
  Country: SG (occurrence: SG)
  Receive Date: 20180601
  Receipt Date: 20180601
  Transmission Date: 20180711
  Serious: Yes (Death)
  Sender: FDA-Public Use
  Company Number: SG-MYLANLABS-2018M1036462

PATIENT
  Age: 45 Year
  Sex: Male

DRUGS (17)
  1. METHOTREXATE. [Suspect]
     Active Substance: METHOTREXATE
     Dosage: SECOND CYCLE
     Route: 065
     Dates: start: 201612
  2. VINCRISTINE [Suspect]
     Active Substance: VINCRISTINE
     Indication: T-CELL TYPE ACUTE LEUKAEMIA
     Dosage: FIRST CYCLE
     Route: 065
  3. METHYLPREDNISOLONE. [Suspect]
     Active Substance: METHYLPREDNISOLONE
     Indication: T-CELL TYPE ACUTE LEUKAEMIA
     Dosage: FIRST CYCLE
     Route: 065
  4. METHYLPREDNISOLONE. [Suspect]
     Active Substance: METHYLPREDNISOLONE
     Dosage: SECOND CYCLE
     Route: 065
     Dates: start: 201612
  5. CYTARABINE. [Suspect]
     Active Substance: CYTARABINE
     Dosage: SECOND CYCLE
     Route: 037
     Dates: start: 201612
  6. FLUCONAZOLE. [Concomitant]
     Active Substance: FLUCONAZOLE
     Indication: ANTIFUNGAL PROPHYLAXIS
     Route: 065
  7. DOXORUBICIN [Suspect]
     Active Substance: DOXORUBICIN
     Dosage: SECOND CYCLE
     Route: 065
     Dates: start: 201612
  8. DEXAMETHASONE. [Suspect]
     Active Substance: DEXAMETHASONE
     Dosage: SECOND CYCLE
     Route: 065
     Dates: start: 201612
  9. VINCRISTINE [Suspect]
     Active Substance: VINCRISTINE
     Dosage: SECOND CYCLE
     Route: 065
     Dates: start: 201612
  10. CYTARABINE. [Suspect]
     Active Substance: CYTARABINE
     Indication: T-CELL TYPE ACUTE LEUKAEMIA
     Dosage: FIRST CYCLE
     Route: 037
  11. DEXAMETHASONE. [Suspect]
     Active Substance: DEXAMETHASONE
     Indication: T-CELL TYPE ACUTE LEUKAEMIA
     Dosage: FIRST CYCLE
     Route: 065
  12. DOXORUBICIN [Suspect]
     Active Substance: DOXORUBICIN
     Indication: T-CELL TYPE ACUTE LEUKAEMIA
     Dosage: FIRST CYCLE
     Route: 065
  13. CYCLOPHOSPHAMIDE. [Suspect]
     Active Substance: CYCLOPHOSPHAMIDE
     Indication: T-CELL TYPE ACUTE LEUKAEMIA
     Dosage: FIRST CYCLE
     Route: 065
  14. CYCLOPHOSPHAMIDE. [Suspect]
     Active Substance: CYCLOPHOSPHAMIDE
     Dosage: SECOND CYCLE
     Route: 065
     Dates: start: 201612
  15. METHOTREXATE. [Suspect]
     Active Substance: METHOTREXATE
     Indication: T-CELL TYPE ACUTE LEUKAEMIA
     Dosage: FIRST CYCLE
     Route: 065
  16. FOLINIC ACID [Suspect]
     Active Substance: LEUCOVORIN
     Indication: T-CELL TYPE ACUTE LEUKAEMIA
     Dosage: FIRST CYCLE
     Route: 065
  17. FOLINIC ACID [Suspect]
     Active Substance: LEUCOVORIN
     Dosage: SECOND CYCLE
     Route: 065
     Dates: start: 201612

REACTIONS (4)
  - Device related infection [Fatal]
  - Respiratory tract infection fungal [Fatal]
  - Central nervous system fungal infection [Fatal]
  - Fungal skin infection [Fatal]
